FAERS Safety Report 9533489 (Version 1)
Quarter: 2013Q1

REPORT INFORMATION
  Report Type: Spontaneous
  Country: US (occurrence: None)
  Receive Date: 20130321
  Receipt Date: 20130321
  Transmission Date: 20140127
  Serious: Yes (Other)
  Sender: FDA-Public Use
  Company Number: AUR-APL-2012-02780

PATIENT
  Age: 80 Year
  Sex: Male
  Weight: 81.19 kg

DRUGS (3)
  1. GABAPENTIN (GABAPENTIN) [Suspect]
     Indication: RESTLESS LEGS SYNDROME
     Route: 048
  2. SYNTHROID (LEVOTHYROXINE SODIUM) [Concomitant]
  3. HYDROCODONE (HYDROCODONE) [Concomitant]

REACTIONS (5)
  - Pollakiuria [None]
  - Urinary retention [None]
  - Dysuria [None]
  - Anuria [None]
  - Dizziness [None]
